FAERS Safety Report 8216356-8 (Version None)
Quarter: 2012Q1

REPORT INFORMATION
  Report Type: 
  Country: None (occurrence: None)
  Receive Date: 20120316
  Receipt Date: 20120313
  Transmission Date: 20120608
  Serious: Yes (Death)
  Sender: FDA-Public Use
  Company Number: PHEH2012US005910

PATIENT
  Age: 85 Year
  Sex: Female

DRUGS (1)
  1. TOBI [Suspect]
     Dosage: 300 MG,  TWICE A DAY 28 DAYS ON AND
     Dates: start: 20110804, end: 20111121

REACTIONS (1)
  - DEATH [None]
